FAERS Safety Report 5668929-4 (Version None)
Quarter: 2008Q1

REPORT INFORMATION
  Report Type: 
  Country: None (occurrence: None)
  Receive Date: 20080317
  Receipt Date: 20080304
  Transmission Date: 20080703
  Serious: Yes (Hospitalization, Other)
  Sender: FDA-Public Use
  Company Number: US-AVENTIS-200811445US

PATIENT
  Sex: Male

DRUGS (4)
  1. LOVENOX [Suspect]
     Route: 051
     Dates: start: 20060301
  2. PLAVIX [Suspect]
     Dosage: DOSE: UNK
     Dates: start: 20040101
  3. NITROGLYCERIN [Concomitant]
     Indication: CHEST PAIN
     Dosage: DOSE: UNK
     Route: 060
     Dates: start: 20060321
  4. DILTIAZEM [Concomitant]
     Dosage: DOSE: UNK

REACTIONS (20)
  - ABDOMINAL DISTENSION [None]
  - ABDOMINAL OPERATION [None]
  - BLOOD PRESSURE DECREASED [None]
  - CONDITION AGGRAVATED [None]
  - CONTUSION [None]
  - DEPRESSED LEVEL OF CONSCIOUSNESS [None]
  - FALL [None]
  - INJECTION SITE BRUISING [None]
  - INJECTION SITE DISCOLOURATION [None]
  - INJECTION SITE IRRITATION [None]
  - INJECTION SITE PAIN [None]
  - INJECTION SITE REACTION [None]
  - LACERATION [None]
  - PAIN [None]
  - PANCREATIC INSUFFICIENCY [None]
  - RENAL DISORDER [None]
  - RENAL FAILURE [None]
  - SUTURE INSERTION [None]
  - VESSEL PUNCTURE SITE HAEMATOMA [None]
  - WRONG TECHNIQUE IN DRUG USAGE PROCESS [None]
